FAERS Safety Report 20705818 (Version 1)
Quarter: 2022Q2

REPORT INFORMATION
  Report Type: Spontaneous
  Country: FR (occurrence: FR)
  Receive Date: 20220413
  Receipt Date: 20220413
  Transmission Date: 20220721
  Serious: Yes (Other)
  Sender: FDA-Public Use
  Company Number: None

PATIENT
  Age: 53 Year
  Sex: Male
  Weight: 82 kg

DRUGS (14)
  1. PIPERACILLIN SODIUM\TAZOBACTAM SODIUM [Suspect]
     Active Substance: PIPERACILLIN SODIUM\TAZOBACTAM SODIUM
     Indication: Infection
     Dosage: 4 G, 2X/DAY (EVERY 12 HOURS)
     Route: 048
     Dates: start: 20220115, end: 20220121
  2. LINEZOLID [Suspect]
     Active Substance: LINEZOLID
     Indication: Infection
     Dosage: 1.2 G, 1X/DAY
     Route: 048
     Dates: start: 20220115, end: 20220117
  3. AUGMENTIN [Suspect]
     Active Substance: AMOXICILLIN\CLAVULANATE POTASSIUM
     Indication: Lung disorder
     Dosage: 2 DF, 1X/DAY
     Route: 048
     Dates: start: 20220103, end: 20220110
  4. RACECADOTRIL [Suspect]
     Active Substance: RACECADOTRIL
     Indication: Diarrhoea
     Dosage: 100 MG, 1X/DAY
     Route: 048
     Dates: start: 20220106, end: 20220121
  5. DARUNAVIR [Concomitant]
     Active Substance: DARUNAVIR
     Dosage: 1 DF, 1X/DAY
     Route: 048
     Dates: start: 20220105
  6. SODIUM BICARBONATE [Concomitant]
     Active Substance: SODIUM BICARBONATE
     Dosage: 3 G, 1X/DAY
     Route: 048
     Dates: start: 20220107
  7. CARRAGEENAN\LIDOCAINE\TITANIUM\ZINC [Concomitant]
     Active Substance: CARRAGEENAN\LIDOCAINE\TITANIUM\ZINC
     Dosage: UNK
     Route: 048
     Dates: start: 20220109, end: 20220216
  8. RITONAVIR [Concomitant]
     Active Substance: RITONAVIR
     Dosage: 50 MG, 1X/DAY
     Route: 048
     Dates: start: 20220105
  9. DOLUTEGRAVIR [Concomitant]
     Active Substance: DOLUTEGRAVIR
     Dosage: 50 MG, 1X/DAY
     Route: 048
     Dates: start: 20220105
  10. DARBEPOETIN ALFA [Concomitant]
     Active Substance: DARBEPOETIN ALFA
     Dosage: UNK
     Route: 048
     Dates: start: 20220110, end: 20220126
  11. ATOVAQUONE [Concomitant]
     Active Substance: ATOVAQUONE
     Dosage: UNK
     Route: 048
     Dates: start: 20220103, end: 20220131
  12. BISOPROLOL [Concomitant]
     Active Substance: BISOPROLOL
     Dosage: UNK
     Route: 048
     Dates: start: 20220103
  13. TENOFOVIR DISOPROXIL [Concomitant]
     Active Substance: TENOFOVIR DISOPROXIL
     Dosage: 245 MG, 1X/DAY
     Route: 048
     Dates: start: 20220105
  14. AMLODIPINE [Concomitant]
     Active Substance: AMLODIPINE BESYLATE
     Dosage: UNK
     Route: 048
     Dates: end: 20220116

REACTIONS (1)
  - Pancreatitis [Recovering/Resolving]

NARRATIVE: CASE EVENT DATE: 20220117
